FAERS Safety Report 5330682-1 (Version None)
Quarter: 2007Q2

REPORT INFORMATION
  Report Type: 
  Country: None (occurrence: None)
  Receive Date: 20070522
  Receipt Date: 20070514
  Transmission Date: 20071010
  Serious: Yes (Hospitalization)
  Sender: FDA-Public Use
  Company Number: PHEH2007US07462

PATIENT
  Sex: Male

DRUGS (2)
  1. TEKTURNA [Suspect]
     Indication: HYPERTENSION
     Dosage: 150 MG, QD
     Route: 048
  2. DIOVAN [Concomitant]

REACTIONS (3)
  - CREATININE RENAL CLEARANCE INCREASED [None]
  - DIZZINESS [None]
  - VOMITING [None]
